FAERS Safety Report 11922919 (Version 1)
Quarter: 2016Q1

REPORT INFORMATION
  Report Type: Spontaneous
  Country: US (occurrence: US)
  Receive Date: 20160116
  Receipt Date: 20160116
  Transmission Date: 20160526
  Serious: Yes (Other)
  Sender: FDA-Public Use
  Company Number: US-DEP_12672_2015

PATIENT
  Age: 62 Year
  Sex: Male
  Weight: 78 kg

DRUGS (13)
  1. NUCYNTA [Suspect]
     Active Substance: TAPENTADOL HYDROCHLORIDE
     Indication: PAIN IN EXTREMITY
     Dosage: ADDITIONAL DOSE, UP TO 4 OR 5 A DAY
     Route: 048
     Dates: start: 20150906, end: 20150916
  2. NUCYNTA [Suspect]
     Active Substance: TAPENTADOL HYDROCHLORIDE
     Indication: BACK PAIN
     Route: 048
     Dates: start: 20150905
  3. MORPHINE IR [Suspect]
     Active Substance: MORPHINE
     Indication: PAIN IN EXTREMITY
     Route: 048
     Dates: start: 201508, end: 20150904
  4. GABAPENTIN. [Concomitant]
     Active Substance: GABAPENTIN
     Indication: BACK PAIN
     Route: 048
     Dates: start: 2014
  5. HYDROCODONE/PARACETAMOL [Suspect]
     Active Substance: ACETAMINOPHEN\HYDROCODONE BITARTRATE
     Indication: PAIN IN EXTREMITY
     Dosage: 10/325 MG
     Route: 048
     Dates: end: 201508
  6. GABAPENTIN. [Concomitant]
     Active Substance: GABAPENTIN
     Indication: PAIN IN EXTREMITY
     Route: 048
     Dates: start: 2014
  7. HCTZ [Concomitant]
     Active Substance: HYDROCHLOROTHIAZIDE
     Indication: BLOOD PRESSURE ABNORMAL
     Route: 048
     Dates: start: 2005
  8. HYDROCODONE/PARACETAMOL [Suspect]
     Active Substance: ACETAMINOPHEN\HYDROCODONE BITARTRATE
     Indication: BACK PAIN
     Dosage: 10/325 MG
     Route: 048
     Dates: end: 201508
  9. ASPIRIN. [Concomitant]
     Active Substance: ASPIRIN
     Indication: FAMILIAL RISK FACTOR
     Route: 048
  10. LIPITOR [Concomitant]
     Active Substance: ATORVASTATIN CALCIUM
     Indication: BLOOD CHOLESTEROL ABNORMAL
     Route: 048
     Dates: start: 201507
  11. CLONIDINE. [Suspect]
     Active Substance: CLONIDINE
     Indication: DRUG WITHDRAWAL SYNDROME
     Dosage: EVENING
     Route: 048
  12. LISINOPRIL. [Concomitant]
     Active Substance: LISINOPRIL
     Indication: BLOOD PRESSURE ABNORMAL
     Route: 048
     Dates: start: 2010
  13. MORPHINE IR [Suspect]
     Active Substance: MORPHINE
     Indication: BACK PAIN
     Route: 048
     Dates: start: 201508, end: 20150904

REACTIONS (11)
  - Restlessness [Recovered/Resolved]
  - Drug withdrawal syndrome [Recovered/Resolved]
  - Extra dose administered [Recovered/Resolved]
  - Feeling abnormal [Recovered/Resolved]
  - Dry mouth [Not Recovered/Not Resolved]
  - Somnolence [Not Recovered/Not Resolved]
  - Headache [Recovered/Resolved]
  - Gastrointestinal hypermotility [Recovered/Resolved]
  - Muscle spasms [Recovered/Resolved]
  - Thirst [Not Recovered/Not Resolved]
  - Hangover [Not Recovered/Not Resolved]

NARRATIVE: CASE EVENT DATE: 201509
